FAERS Safety Report 18997205 (Version 1)
Quarter: 2021Q1

REPORT INFORMATION
  Report Type: Spontaneous
  Country: US (occurrence: US)
  Receive Date: 20210311
  Receipt Date: 20210311
  Transmission Date: 20210420
  Serious: Yes (Other)
  Sender: FDA-Public Use
  Company Number: US-GLAXOSMITHKLINE-US2021059443

PATIENT
  Age: 66 Year
  Sex: Female

DRUGS (1)
  1. FLONASE ALLERGY RELIEF [Suspect]
     Active Substance: FLUTICASONE PROPIONATE
     Indication: HYPERSENSITIVITY
     Dosage: UNK
     Dates: start: 20210308, end: 20210308

REACTIONS (3)
  - Migraine [Unknown]
  - Rhinorrhoea [Unknown]
  - Glaucoma [Unknown]

NARRATIVE: CASE EVENT DATE: 20210308
